FAERS Safety Report 9132999 (Version 1)
Quarter: 2013Q1

REPORT INFORMATION
  Report Type: Spontaneous
  Country: DE (occurrence: DE)
  Receive Date: 20130301
  Receipt Date: 20130301
  Transmission Date: 20140127
  Serious: Yes (Life-Threatening, Other)
  Sender: FDA-Public Use
  Company Number: DE-UCBSA-078585

PATIENT
  Sex: Male
  Weight: 100 kg

DRUGS (2)
  1. VIMPAT [Suspect]
     Indication: EPILEPSY
     Route: 048
     Dates: start: 201008, end: 201302
  2. APYDAN [Concomitant]
     Indication: EPILEPSY
     Route: 048

REACTIONS (3)
  - Suicidal ideation [Unknown]
  - Abnormal behaviour [Unknown]
  - Suicide attempt [Recovering/Resolving]
